FAERS Safety Report 6970499-5 (Version None)
Quarter: 2010Q3

REPORT INFORMATION
  Report Type: 
  Country: None (occurrence: None)
  Receive Date: 20100824
  Receipt Date: 20100518
  Transmission Date: 20110219
  Serious: Yes (Other)
  Sender: FDA-Public Use
  Company Number: 2010062401

PATIENT
  Sex: Female

DRUGS (2)
  1. NORVASC [Suspect]
  2. VITAMIN D [Suspect]

REACTIONS (3)
  - BLOOD CALCIUM INCREASED [None]
  - DIZZINESS [None]
  - HYPOTENSION [None]
